FAERS Safety Report 14657637 (Version 2)
Quarter: 2018Q2

REPORT INFORMATION
  Report Type: Report from Study
  Country: US (occurrence: US)
  Receive Date: 20180320
  Receipt Date: 20180423
  Transmission Date: 20180711
  Serious: Yes (Death, Hospitalization)
  Sender: FDA-Public Use
  Company Number: PHHO2018US002491

PATIENT
  Age: 58 Year
  Sex: Female

DRUGS (6)
  1. PREDNISONE. [Suspect]
     Active Substance: PREDNISONE
     Indication: ACUTE GRAFT VERSUS HOST DISEASE
     Dosage: 12.5 MG, QD
     Route: 048
     Dates: start: 20170926, end: 20180206
  2. METHYLPREDNISOLONE. [Suspect]
     Active Substance: METHYLPREDNISOLONE
     Dosage: 10 MG, QD
     Route: 042
  3. INC424A [Suspect]
     Active Substance: RUXOLITINIB
     Indication: ACUTE GRAFT VERSUS HOST DISEASE
     Dosage: 10 MG, BID
     Route: 048
     Dates: start: 20170908, end: 20171214
  4. TACROLIMUS. [Concomitant]
     Active Substance: TACROLIMUS
     Indication: GRAFT VERSUS HOST DISEASE
     Dosage: 0.75 MG, QD (0.5 MG AM, 0.25 MG PM)
     Route: 048
     Dates: start: 20180131
  5. METHYLPREDNISOLONE. [Suspect]
     Active Substance: METHYLPREDNISOLONE
     Indication: GRAFT VERSUS HOST DISEASE
     Dosage: 40 MG, QD
     Route: 042
     Dates: start: 20180207
  6. TACROLIMUS. [Concomitant]
     Active Substance: TACROLIMUS
     Dosage: 0.5 MG AM, 0.25 MG PM
     Route: 048
     Dates: start: 20180131, end: 20180216

REACTIONS (5)
  - Cellulitis [Not Recovered/Not Resolved]
  - Encephalopathy [Not Recovered/Not Resolved]
  - Pseudomonal bacteraemia [Not Recovered/Not Resolved]
  - Acute graft versus host disease [Fatal]
  - Renal tubular necrosis [Fatal]

NARRATIVE: CASE EVENT DATE: 20170822
